FAERS Safety Report 6794761-4 (Version None)
Quarter: 2010Q2

REPORT INFORMATION
  Report Type: 
  Country: None (occurrence: None)
  Receive Date: 20100625
  Receipt Date: 20100115
  Transmission Date: 20101027
  Serious: Yes (Hospitalization, Other)
  Sender: FDA-Public Use
  Company Number: US-ASTRAZENECA-2009SE17832

PATIENT
  Age: 48 Year
  Sex: Female
  Weight: 89.4 kg

DRUGS (11)
  1. SEROQUEL [Suspect]
     Indication: MENTAL DISORDER
     Dosage: 25 MG  TO 100 MG DAILY
     Route: 048
     Dates: start: 20001101, end: 20060101
  2. SEROQUEL [Suspect]
     Indication: SLEEP DISORDER
     Dosage: 25 MG  TO 100 MG DAILY
     Route: 048
     Dates: start: 20001101, end: 20060101
  3. ABILIFY [Concomitant]
  4. GEODON [Concomitant]
  5. RISPERDAL [Concomitant]
     Dosage: 15 ONE AT NIGHT
  6. ZYPREXA [Concomitant]
     Dates: start: 19990101, end: 20040101
  7. CLONAZEPAM [Concomitant]
     Dosage: 1MG TAKE 1/2 TABLET BID AND 1QHS
     Dates: start: 20001101
  8. EFFEXOR XR [Concomitant]
     Dosage: 150 MG TAKE ONE CAPSULE PO QAM
     Route: 048
     Dates: start: 20001204
  9. LISINOPRIL [Concomitant]
     Dosage: TAKE ONE TABLET PO DAILY
     Route: 048
     Dates: start: 20050725
  10. ZONEGRAN [Concomitant]
     Dosage: 100 MG CAPSULE TAKE 1 QHSX 2WKS THEN 2 CAPSULES QHSX 2WKS THEN 3 CAPSULES QHS
     Route: 048
     Dates: start: 20051214
  11. METFORMIN HCL [Concomitant]
     Dosage: 1000 MG TAKE ONE BID
     Route: 048
     Dates: start: 20050810

REACTIONS (2)
  - DIABETIC NEUROPATHY [None]
  - TYPE 2 DIABETES MELLITUS [None]
